FAERS Safety Report 8879995 (Version 1)
Quarter: 2012Q4

REPORT INFORMATION
  Report Type: Report from Study
  Country: US (occurrence: US)
  Receive Date: 20121031
  Receipt Date: 20121031
  Transmission Date: 20130627
  Serious: Yes (Hospitalization)
  Sender: FDA-Public Use
  Company Number: US-JNJFOC-20121017312

PATIENT
  Age: 15 Year
  Sex: Female
  Weight: 54.2 kg

DRUGS (5)
  1. REMICADE [Suspect]
     Indication: INFLAMMATORY BOWEL DISEASE
     Route: 042
     Dates: start: 20110630
  2. MELATONIN [Concomitant]
  3. CITALOPRAM [Concomitant]
  4. RISPERIDONE [Concomitant]
  5. LORAZEPAM [Concomitant]

REACTIONS (1)
  - Mental status changes [Recovered/Resolved with Sequelae]
